FAERS Safety Report 6384605-7 (Version None)
Quarter: 2009Q4

REPORT INFORMATION
  Report Type: 
  Country: None (occurrence: None)
  Receive Date: 20091001
  Receipt Date: 20090921
  Transmission Date: 20100525
  Serious: Yes (Hospitalization, Other)
  Sender: FDA-Public Use
  Company Number: PHHY2009BR41067

PATIENT
  Age: 89 Year
  Sex: Male
  Weight: 70 kg

DRUGS (1)
  1. TEGRETOL [Suspect]
     Indication: TRIGEMINAL NEURALGIA
     Dosage: 200 MG, HALF TABLET EVERY 4 HOURS
     Route: 048
     Dates: start: 20090911

REACTIONS (4)
  - CONSTIPATION [None]
  - EATING DISORDER [None]
  - FAECALOMA [None]
  - OLIGURIA [None]
